FAERS Safety Report 5725788-9 (Version None)
Quarter: 2008Q2

REPORT INFORMATION
  Report Type: 
  Country: None (occurrence: None)
  Receive Date: 20080429
  Receipt Date: 20080418
  Transmission Date: 20081010
  Serious: Yes (Hospitalization)
  Sender: FDA-Public Use
  Company Number: 2008BI010392

PATIENT
  Age: 59 Year
  Sex: Female

DRUGS (1)
  1. AVONEX [Suspect]
     Indication: MULTIPLE SCLEROSIS
     Dosage: 30 UG;QW;IM
     Route: 030
     Dates: start: 20030912

REACTIONS (7)
  - ABASIA [None]
  - ASTHENIA [None]
  - BLOOD DISORDER [None]
  - FEELING COLD [None]
  - HYPOTENSION [None]
  - INFECTION [None]
  - URINARY TRACT INFECTION [None]
